FAERS Safety Report 18200899 (Version 3)
Quarter: 2020Q3

REPORT INFORMATION
  Report Type: Spontaneous
  Country: US (occurrence: US)
  Receive Date: 20200827
  Receipt Date: 20200908
  Transmission Date: 20201103
  Serious: No
  Sender: FDA-Public Use
  Company Number: US-SA-2020SA227954

PATIENT

DRUGS (1)
  1. DUPIXENT [Suspect]
     Active Substance: DUPILUMAB
     Indication: ASTHMA
     Dosage: 600 MG, 1X
     Route: 058
     Dates: start: 20200818, end: 20200818

REACTIONS (10)
  - Product use issue [Unknown]
  - Injection site pain [Unknown]
  - Dry eye [Unknown]
  - Influenza [Unknown]
  - Myalgia [Unknown]
  - Pain of skin [Unknown]
  - Lethargy [Unknown]
  - Oropharyngeal pain [Unknown]
  - Ear discomfort [Unknown]
  - Headache [Unknown]

NARRATIVE: CASE EVENT DATE: 202008
